FAERS Safety Report 5089969-2 (Version None)
Quarter: 2006Q3

REPORT INFORMATION
  Report Type: 
  Country: None (occurrence: None)
  Receive Date: 20060731
  Receipt Date: 20060418
  Transmission Date: 20061208
  Serious: Yes (Other)
  Sender: FDA-Public Use
  Company Number: 200611501BWH

PATIENT
  Age: 36 Year
  Sex: Male
  Weight: 126.6 kg

DRUGS (10)
  1. AVELOX [Suspect]
     Indication: TUBERCULOSIS
     Dosage: 400 MG, QD, ORAL
     Route: 048
  2. UNASYN [Concomitant]
  3. METRONIDAZOLE [Concomitant]
  4. ETHAMBUTOL HYDROCHLORIDE [Concomitant]
  5. STREPTOMYCIN [Concomitant]
  6. VITAMIN K [Concomitant]
  7. SPIRONOLACTONE [Concomitant]
  8. URSODIOL [Concomitant]
  9. STEROIDS [Concomitant]
  10. CYCLOSERINE [Concomitant]

REACTIONS (2)
  - HYPERBILIRUBINAEMIA [None]
  - LIVER FUNCTION TEST ABNORMAL [None]
